FAERS Safety Report 8337545-8 (Version None)
Quarter: 2012Q2

REPORT INFORMATION
  Report Type: 
  Country: None (occurrence: None)
  Receive Date: 20120504
  Receipt Date: 20120427
  Transmission Date: 20120825
  Serious: No
  Sender: FDA-Public Use
  Company Number: US-PFIZER INC-2012052610

PATIENT
  Sex: Female

DRUGS (1)
  1. ZITHROMAX [Suspect]
     Dosage: UNK

REACTIONS (8)
  - HEART RATE INCREASED [None]
  - ANXIETY [None]
  - BLOOD PRESSURE ABNORMAL [None]
  - FEELING ABNORMAL [None]
  - PAIN [None]
  - TINNITUS [None]
  - HYPOAESTHESIA [None]
  - JARISCH-HERXHEIMER REACTION [None]
